FAERS Safety Report 10754608 (Version 1)
Quarter: 2015Q1

REPORT INFORMATION
  Report Type: Spontaneous
  Country: US (occurrence: US)
  Receive Date: 20150202
  Receipt Date: 20150202
  Transmission Date: 20150721
  Serious: Yes (Other)
  Sender: FDA-Public Use
  Company Number: US-SA-2015SA011154

PATIENT
  Age: 51 Year
  Sex: Male

DRUGS (2)
  1. HECTOROL [Suspect]
     Active Substance: DOXERCALCIFEROL
     Indication: BLOOD PARATHYROID HORMONE ABNORMAL
     Route: 065
     Dates: end: 2014
  2. HECTOROL [Suspect]
     Active Substance: DOXERCALCIFEROL
     Indication: BLOOD PARATHYROID HORMONE ABNORMAL
     Route: 065
     Dates: end: 20150126

REACTIONS (3)
  - Calciphylaxis [Not Recovered/Not Resolved]
  - Skin exfoliation [Not Recovered/Not Resolved]
  - Calcinosis [Not Recovered/Not Resolved]
